FAERS Safety Report 10922138 (Version 2)
Quarter: 2015Q2

REPORT INFORMATION
  Report Type: Spontaneous
  Country: US (occurrence: US)
  Receive Date: 20150317
  Receipt Date: 20150520
  Transmission Date: 20150821
  Serious: No
  Sender: FDA-Public Use
  Company Number: US-GLAXOSMITHKLINE-US2015030465

PATIENT
  Age: 62 Year
  Sex: Female

DRUGS (5)
  1. NAFTIN [Concomitant]
     Active Substance: NAFTIFINE HYDROCHLORIDE
  2. ARMOUR THYROID [Concomitant]
     Active Substance: THYROID, PORCINE\THYROID, UNSPECIFIED
  3. RHINOCORT [Concomitant]
     Active Substance: BUDESONIDE
  4. FLOVENT DISKUS [Suspect]
     Active Substance: FLUTICASONE PROPIONATE
     Indication: ASTHMA
     Dosage: 2 PUFF(S), QD
     Route: 055
  5. ERYTHOMYCIN TOPICAL [Concomitant]

REACTIONS (2)
  - Malaise [Recovered/Resolved]
  - Product quality issue [Unknown]

NARRATIVE: CASE EVENT DATE: 20150304
